FAERS Safety Report 25020038 (Version 1)
Quarter: 2025Q1

REPORT INFORMATION
  Report Type: Spontaneous
  Country: US (occurrence: None)
  Receive Date: 20250227
  Receipt Date: 20250227
  Transmission Date: 20250409
  Serious: Yes (Hospitalization, Other)
  Sender: INCYTE
  Company Number: US-INCYTE CORPORATION-2025IN002051

PATIENT
  Age: 28 Year
  Weight: 69.5 kg

DRUGS (1)
  1. JAKAFI [Suspect]
     Active Substance: RUXOLITINIB
     Indication: Chronic graft versus host disease
     Route: 065

REACTIONS (6)
  - Graft versus host disease in liver [Unknown]
  - Fall [Unknown]
  - Vancomycin infusion reaction [Unknown]
  - Staphylococcal bacteraemia [Not Recovered/Not Resolved]
  - Epstein-Barr virus infection reactivation [Unknown]
  - Hepatic enzyme increased [Not Recovered/Not Resolved]
